FAERS Safety Report 14003333 (Version 4)
Quarter: 2017Q4

REPORT INFORMATION
  Report Type: Spontaneous
  Country: US (occurrence: US)
  Receive Date: 20170922
  Receipt Date: 20171108
  Transmission Date: 20180321
  Serious: Yes (Hospitalization)
  Sender: FDA-Public Use
  Company Number: US-ACTELION-A-NJ2017-159771

PATIENT
  Age: 49 Year
  Sex: Female
  Weight: 104.31 kg

DRUGS (5)
  1. OPSUMIT [Concomitant]
     Active Substance: MACITENTAN
  2. REVATIO [Concomitant]
     Active Substance: SILDENAFIL CITRATE
  3. COUMADIN [Concomitant]
     Active Substance: WARFARIN SODIUM
  4. VELETRI [Suspect]
     Active Substance: EPOPROSTENOL
     Indication: PULMONARY ARTERIAL HYPERTENSION
     Dosage: 27 NG/KG, PER MIN
     Route: 042
  5. VELETRI [Suspect]
     Active Substance: EPOPROSTENOL
     Dosage: 28.4 NG/KG, PER MIN
     Route: 042

REACTIONS (8)
  - Oxygen saturation decreased [Unknown]
  - Infusion site infection [Unknown]
  - Presyncope [Unknown]
  - Fluid retention [Recovering/Resolving]
  - Blood glucose abnormal [Unknown]
  - Restless legs syndrome [Unknown]
  - Pain in extremity [Unknown]
  - Thyroid disorder [Unknown]
